FAERS Safety Report 8291481 (Version 3)
Quarter: 2013Q2

REPORT INFORMATION
  Report Type: Spontaneous
  Country: US (occurrence: None)
  Receive Date: 20111122
  Receipt Date: 20120703
  Transmission Date: 20140414
  Serious: No
  Sender: FDA-Public Use
  Company Number: PHEH2011US00687

PATIENT
  Age: 35 Year
  Sex: Female

DRUGS (6)
  1. GILENYA [Suspect]
     Indication: MULTIPLE SCLEROSIS
     Dosage: 0.5 MG, QD, ORAL
     Route: 048
     Dates: start: 20110715
  2. ALPRAZOLAM (ALPRAZOLAM) [Concomitant]
  3. BACLOFEN [Concomitant]
  4. CLARITIN [Concomitant]
  5. ZOLOFT [Concomitant]
  6. SEROQUEL [Concomitant]

REACTIONS (3)
  - PAIN [None]
  - HEADACHE [None]
  - Bursitis [None]
